FAERS Safety Report 18948795 (Version 1)
Quarter: 2021Q1

REPORT INFORMATION
  Report Type: Spontaneous
  Country: BJ (occurrence: BJ)
  Receive Date: 20210227
  Receipt Date: 20210227
  Transmission Date: 20210420
  Serious: Yes (Hospitalization, Other)
  Sender: FDA-Public Use
  Company Number: BJ-IPCA LABORATORIES LIMITED-IPC-2021-BJ-000459

PATIENT

DRUGS (2)
  1. AZITHROMYCIN ANHYDROUS. [Suspect]
     Active Substance: AZITHROMYCIN ANHYDROUS
     Indication: COVID-19
     Dosage: 250 MILLIGRAM, QD
     Route: 065
  2. CHLOROQUINE. [Suspect]
     Active Substance: CHLOROQUINE
     Indication: COVID-19
     Dosage: 500 MILLIGRAM, QD
     Route: 065

REACTIONS (8)
  - Confusional state [Unknown]
  - Generalised tonic-clonic seizure [Recovered/Resolved]
  - Urine output increased [Unknown]
  - Loss of consciousness [Unknown]
  - Salivary hypersecretion [Unknown]
  - Tongue biting [Unknown]
  - Tachycardia [Unknown]
  - Dyspnoea [Unknown]
